FAERS Safety Report 5240290-9 (Version None)
Quarter: 2007Q1

REPORT INFORMATION
  Report Type: 
  Country: None (occurrence: None)
  Receive Date: 20061208
  Receipt Date: 20050204
  Transmission Date: 20070707
  Serious: Yes (Other)
  Sender: FDA-Public Use
  Company Number: 2005UW01955

PATIENT
  Age: 66 Year
  Sex: Female
  Weight: 58.967 kg

DRUGS (8)
  1. CRESTOR [Suspect]
     Indication: HYPERCHOLESTEROLAEMIA
     Dosage: 10 MG PO
     Route: 048
     Dates: start: 20050101, end: 20050202
  2. COENZYME Q10 [Concomitant]
  3. ASCORBIC ACID [Concomitant]
  4. VITAMIN D [Concomitant]
  5. VITAMIN E [Concomitant]
  6. MULTI-VITAMINS [Concomitant]
  7. NIACIN [Concomitant]
  8. ASPIRIN [Concomitant]

REACTIONS (2)
  - BONE PAIN [None]
  - MYALGIA [None]
